FAERS Safety Report 7431816-5 (Version None)
Quarter: 2011Q2

REPORT INFORMATION
  Report Type: 
  Country: None (occurrence: None)
  Receive Date: 20110422
  Receipt Date: 20110309
  Transmission Date: 20111010
  Serious: Yes (Other)
  Sender: FDA-Public Use
  Company Number: DE-JNJFOC-20110409073

PATIENT
  Age: 41 Year
  Sex: Male
  Weight: 100 kg

DRUGS (1)
  1. NICORETTE [Suspect]
     Indication: SMOKING CESSATION THERAPY
     Dosage: APPROXIMATELY 25 PIECES PER DAY
     Route: 048

REACTIONS (5)
  - OVERDOSE [None]
  - INTENTIONAL DRUG MISUSE [None]
  - DEPENDENCE [None]
  - NAUSEA [None]
  - VERTIGO [None]
